FAERS Safety Report 8607038-9 (Version None)
Quarter: 2012Q3

REPORT INFORMATION
  Report Type: 
  Country: None (occurrence: None)
  Receive Date: 20120821
  Receipt Date: 20120809
  Transmission Date: 20120928
  Serious: Yes (Other)
  Sender: FDA-Public Use
  Company Number: JP-BRISTOL-MYERS SQUIBB COMPANY-16836611

PATIENT
  Age: 64 Year
  Sex: Female

DRUGS (3)
  1. ZOLPIDEM [Concomitant]
     Route: 048
  2. GLUFAST [Concomitant]
     Route: 048
  3. METFORMIN HCL [Suspect]
     Indication: DIABETES MELLITUS
     Route: 048
     Dates: start: 20100720, end: 20120722

REACTIONS (1)
  - RHABDOMYOLYSIS [None]
